FAERS Safety Report 16431962 (Version 2)
Quarter: 2019Q3

REPORT INFORMATION
  Report Type: Spontaneous
  Country: US (occurrence: US)
  Receive Date: 20190614
  Receipt Date: 20190705
  Transmission Date: 20191004
  Serious: Yes (Other)
  Sender: FDA-Public Use
  Company Number: US-NOVOPROD-666510

PATIENT
  Age: 69 Year
  Sex: Male

DRUGS (1)
  1. OZEMPIC [Suspect]
     Active Substance: SEMAGLUTIDE
     Indication: TYPE 2 DIABETES MELLITUS
     Dosage: 0.25 MG
     Route: 058
     Dates: start: 20190509, end: 20190523

REACTIONS (3)
  - Head discomfort [Recovered/Resolved]
  - Diabetic retinopathy [Unknown]
  - Photopsia [Recovered/Resolved]

NARRATIVE: CASE EVENT DATE: 201905
